FAERS Safety Report 4873330-7 (Version None)
Quarter: 2006Q1

REPORT INFORMATION
  Report Type: 
  Country: None (occurrence: None)
  Receive Date: 20060104
  Receipt Date: 20051222
  Transmission Date: 20060701
  Serious: Yes (Other)
  Sender: FDA-Public Use
  Company Number: 220583

PATIENT
  Age: 39 Year
  Sex: Female

DRUGS (5)
  1. MABTHERA (RITUXIMAB) CONC FOR SOLUTION FOR INFUSION [Suspect]
     Indication: B-CELL LYMPHOMA
     Dosage: INTRAVENOUS
     Route: 042
     Dates: start: 20051025, end: 20051025
  2. CYCLOPHOSPHAMIDE [Suspect]
     Indication: B-CELL LYMPHOMA
     Dosage: INTRAVENOUS
     Route: 042
     Dates: start: 20051025, end: 20051025
  3. DOXORUBICIN HCL [Suspect]
     Indication: B-CELL LYMPHOMA
     Dosage: INTRAVENOUS
     Route: 042
     Dates: start: 20051025, end: 20051025
  4. VINCRISTINE [Suspect]
     Indication: B-CELL LYMPHOMA
     Dosage: INTRAVENOUS
     Route: 042
     Dates: start: 20051025, end: 20051025
  5. PREDNISONE [Suspect]
     Indication: B-CELL LYMPHOMA
     Dosage: ORAL
     Route: 048
     Dates: start: 20051025, end: 20051025

REACTIONS (1)
  - ANAPHYLACTIC SHOCK [None]
